FAERS Safety Report 7504996 (Version 3)
Quarter: 2014Q1

REPORT INFORMATION
  Report Type: Spontaneous
  Country: US (occurrence: US)
  Receive Date: 20100728
  Receipt Date: 20140106
  Transmission Date: 20141002
  Serious: Yes (Hospitalization, Other)
  Sender: FDA-Public Use
  Company Number: US-BAYER-201028642NA

PATIENT
  Age: 42 Year
  Sex: Female
  Weight: 99.77 kg

DRUGS (7)
  1. YASMIN [Suspect]
     Indication: CONTRACEPTION
     Dosage: UNK
     Route: 048
     Dates: start: 2003, end: 2008
  2. OCELLA [Suspect]
     Dosage: UNK
     Dates: start: 2008, end: 2009
  3. WELLBUTRIN [Concomitant]
     Dosage: 150 MG, UNK
     Route: 048
     Dates: start: 1998
  4. ADVAIR [Concomitant]
     Dosage: UNK UNK, BID
     Route: 055
     Dates: start: 2000
  5. ALBUTEROL [Concomitant]
     Dosage: UNK UNK, PRN
     Route: 055
     Dates: start: 2000
  6. VICODIN [Concomitant]
     Dosage: 5 MG, PRN
     Route: 048
     Dates: start: 2003
  7. MOBIC [Concomitant]
     Dosage: UNK UNK, PRN
     Route: 048

REACTIONS (8)
  - Gallbladder injury [Unknown]
  - Pancreatitis [None]
  - Cholelithiasis [None]
  - Cholecystitis chronic [None]
  - Abdominal pain upper [None]
  - Back pain [None]
  - Nausea [None]
  - Vomiting [None]
